FAERS Safety Report 21925889 (Version 1)
Quarter: 2023Q1

REPORT INFORMATION
  Report Type: Report from Study
  Country: US (occurrence: US)
  Receive Date: 20230130
  Receipt Date: 20230130
  Transmission Date: 20230417
  Serious: Yes (Other)
  Sender: FDA-Public Use
  Company Number: US-002147023-NVSC2023US016860

PATIENT
  Sex: Male

DRUGS (1)
  1. ENTRESTO [Suspect]
     Active Substance: SACUBITRIL\VALSARTAN
     Indication: Product used for unknown indication
     Dosage: 1 DOSAGE FORM, BID
     Route: 065

REACTIONS (6)
  - Myocardial infarction [Unknown]
  - Erectile dysfunction [Unknown]
  - Weight decreased [Unknown]
  - Blood glucose abnormal [Unknown]
  - Feeling drunk [Unknown]
  - Dizziness [Unknown]
